FAERS Safety Report 11360989 (Version 2)
Quarter: 2015Q3

REPORT INFORMATION
  Report Type: Spontaneous
  Country: US (occurrence: US)
  Receive Date: 20150810
  Receipt Date: 20150910
  Transmission Date: 20151125
  Serious: No
  Sender: FDA-Public Use
  Company Number: US-PFIZER INC-2015256626

PATIENT
  Age: 65 Year
  Sex: Male
  Weight: 95.24 kg

DRUGS (4)
  1. DILANTIN [Suspect]
     Active Substance: PHENYTOIN
     Dosage: 500 MG, DAILY
  2. DILANTIN [Suspect]
     Active Substance: PHENYTOIN
     Dosage: 4X100 MG AND PLAYED IN BETWEEN THE 30 TO 60 AND THE 90 MG, DAILY
  3. DILANTIN [Suspect]
     Active Substance: PHENYTOIN
     Indication: SEIZURE
     Dosage: 400 MG, DAILY
  4. DILANTIN [Suspect]
     Active Substance: PHENYTOIN
     Dosage: 490 MG (4X100 MG AND 3X30 MG), DAILY

REACTIONS (4)
  - Anticonvulsant drug level increased [Unknown]
  - Drug ineffective [Unknown]
  - Drug intolerance [Unknown]
  - Tremor [Unknown]
